FAERS Safety Report 19131210 (Version 5)
Quarter: 2025Q4

REPORT INFORMATION
  Report Type: Spontaneous
  Country: EU (occurrence: EU)
  Receive Date: 20210414
  Receipt Date: 20251215
  Transmission Date: 20260117
  Serious: Yes (Other)
  Sender: AUROBINDO
  Company Number: EU-GRUNENTHAL-2021-263302

PATIENT
  Age: 25 Year
  Sex: Female

DRUGS (3)
  1. TRAMADOL HYDROCHLORIDE [Suspect]
     Active Substance: TRAMADOL HYDROCHLORIDE
     Indication: Procedural pain
     Dosage: 1500 MILLIGRAM, ONCE A DAY
     Route: 061
     Dates: start: 2014
  2. TRAMADOL HYDROCHLORIDE [Suspect]
     Active Substance: TRAMADOL HYDROCHLORIDE
     Dosage: TAKING 1,000 TO 1,500 MG OF TRAMADOL
     Route: 065
  3. Codeine6 [Concomitant]
     Indication: Procedural pain
     Dosage: UNK
     Route: 065

REACTIONS (9)
  - Epilepsy [Recovering/Resolving]
  - Withdrawal syndrome [Unknown]
  - Somnolence [Unknown]
  - Drug dependence [Recovering/Resolving]
  - Maternal exposure during pregnancy [Recovered/Resolved]
  - Intentional product misuse [Recovered/Resolved]
  - Overdose [Recovered/Resolved]
  - Seizure [Recovering/Resolving]
  - Drug abuse [Unknown]
